FAERS Safety Report 5575633-X (Version None)
Quarter: 2007Q4

REPORT INFORMATION
  Report Type: 
  Country: None (occurrence: None)
  Receive Date: 20071226
  Receipt Date: 20071218
  Transmission Date: 20080405
  Serious: Yes (Other)
  Sender: FDA-Public Use
  Company Number: 2007RL000520

PATIENT
  Age: 76 Year
  Sex: Female
  Weight: 40.3701 kg

DRUGS (7)
  1. RYTHMOL SR [Suspect]
     Indication: ATRIAL FIBRILLATION
     Dosage: 225 MG;BID;PO
     Route: 048
     Dates: start: 20070923
  2. COUMADIN [Suspect]
     Indication: DRUG USE FOR UNKNOWN INDICATION
     Dosage: 3 MG;QD;25 MG;QW;
     Dates: end: 20071119
  3. COUMADIN [Suspect]
     Indication: DRUG USE FOR UNKNOWN INDICATION
     Dosage: 3 MG;QD;25 MG;QW;
     Dates: start: 20071123
  4. ATENOLOL [Concomitant]
  5. NORVASC                   /00972401/ [Concomitant]
  6. CODEINE [Concomitant]
  7. METHOTREXATE [Concomitant]

REACTIONS (8)
  - ALANINE AMINOTRANSFERASE INCREASED [None]
  - ASPARTATE AMINOTRANSFERASE INCREASED [None]
  - BLOOD ALKALINE PHOSPHATASE INCREASED [None]
  - BLOOD PRESSURE INCREASED [None]
  - CONSTIPATION [None]
  - DRUG INTERACTION [None]
  - INTERNATIONAL NORMALISED RATIO INCREASED [None]
  - PELVIC FRACTURE [None]
